FAERS Safety Report 24916129 (Version 1)
Quarter: 2025Q1

REPORT INFORMATION
  Report Type: Spontaneous
  Country: US (occurrence: US)
  Receive Date: 20250203
  Receipt Date: 20250203
  Transmission Date: 20250409
  Serious: Yes (Hospitalization, Other)
  Sender: CHEPLAPHARM
  Company Number: US-CHEPLA-2025001308

PATIENT
  Age: 65 Year
  Sex: Male

DRUGS (6)
  1. CLONAZEPAM [Suspect]
     Active Substance: CLONAZEPAM
  2. QUETIAPINE [Suspect]
     Active Substance: QUETIAPINE
  3. ARIPIPRAZOLE [Suspect]
     Active Substance: ARIPIPRAZOLE
  4. DIVALPROEX SODIUM [Suspect]
     Active Substance: DIVALPROEX SODIUM
  5. DONEPEZIL [Suspect]
     Active Substance: DONEPEZIL
  6. ESCITALOPRAM [Suspect]
     Active Substance: ESCITALOPRAM OXALATE

REACTIONS (3)
  - Hallucination [Unknown]
  - Delusion [Unknown]
  - Parkinsonism [Recovering/Resolving]
